FAERS Safety Report 10177586 (Version 1)
Quarter: 2014Q2

REPORT INFORMATION
  Report Type: Spontaneous
  Country: US (occurrence: US)
  Receive Date: 20140516
  Receipt Date: 20140516
  Transmission Date: 20141212
  Serious: No
  Sender: FDA-Public Use
  Company Number: US-BAXTER-2014BAX022763

PATIENT
  Sex: Male

DRUGS (25)
  1. DIANEAL LOW CALCIUM [Suspect]
     Indication: RENAL FAILURE CHRONIC
     Route: 033
     Dates: start: 201306, end: 20140404
  2. DIANEAL LOW CALCIUM [Suspect]
     Dosage: 3
     Route: 033
     Dates: start: 20140404, end: 20140409
  3. DIANEAL LOW CALCIUM [Suspect]
     Dosage: 2
     Route: 033
     Dates: start: 20140409, end: 20140419
  4. DIANEAL LOW CALCIUM [Suspect]
     Dosage: 1
     Route: 033
     Dates: start: 20140419, end: 20140420
  5. DIANEAL LOW CALCIUM [Suspect]
     Dosage: 1
     Route: 033
  6. DIANEAL LOW CALCIUM [Suspect]
     Dosage: 1
     Route: 033
     Dates: start: 20140420, end: 20140503
  7. DIANEAL LOW CALCIUM [Suspect]
     Dosage: 1
     Route: 033
     Dates: start: 20140503, end: 20140506
  8. DIANEAL LOW CALCIUM [Suspect]
     Dosage: 2
     Route: 033
     Dates: start: 20140502
  9. DIANEAL LOW CALCIUM [Suspect]
     Indication: RENAL FAILURE CHRONIC
     Dosage: 1
     Route: 033
     Dates: start: 20140419, end: 20140424
  10. DIANEAL LOW CALCIUM [Suspect]
     Dosage: 1
     Route: 033
  11. DIANEAL LOW CALCIUM [Suspect]
     Dosage: 2
     Route: 033
     Dates: start: 20140502, end: 20140503
  12. DIANEAL LOW CALCIUM [Suspect]
     Dosage: 2
     Route: 033
     Dates: start: 20140503
  13. ALLOPURINOL [Concomitant]
     Indication: GOUT
     Route: 048
  14. CLOPIDOGREL [Concomitant]
     Indication: PRODUCT USED FOR UNKNOWN INDICATION
     Route: 048
  15. GEMFIBROZIL [Concomitant]
     Indication: PRODUCT USED FOR UNKNOWN INDICATION
     Route: 048
  16. VITAMIN D3 [Concomitant]
     Indication: PRODUCT USED FOR UNKNOWN INDICATION
     Route: 048
  17. COREG-CR [Concomitant]
     Indication: PRODUCT USED FOR UNKNOWN INDICATION
     Route: 048
  18. ASPIRIN [Concomitant]
     Indication: PRODUCT USED FOR UNKNOWN INDICATION
     Route: 048
  19. OMEPRAZOLE [Concomitant]
     Indication: PRODUCT USED FOR UNKNOWN INDICATION
     Route: 048
  20. SENSIPAR [Concomitant]
     Indication: PRODUCT USED FOR UNKNOWN INDICATION
     Route: 048
  21. SUPER B COMPLEX WITH VITAMIN C [Concomitant]
     Indication: PRODUCT USED FOR UNKNOWN INDICATION
     Route: 048
  22. FISH OIL [Concomitant]
     Indication: PRODUCT USED FOR UNKNOWN INDICATION
     Route: 048
  23. TUMS [Concomitant]
     Indication: PRODUCT USED FOR UNKNOWN INDICATION
     Route: 048
  24. VENTOLIN [Concomitant]
     Indication: PRODUCT USED FOR UNKNOWN INDICATION
  25. TERAZOSIN [Concomitant]
     Indication: PRODUCT USED FOR UNKNOWN INDICATION
     Route: 048

REACTIONS (8)
  - Peripheral swelling [Recovering/Resolving]
  - Hypertension [Recovering/Resolving]
  - Vomiting [Recovered/Resolved]
  - Discomfort [Recovered/Resolved]
  - Cough [Recovered/Resolved]
  - Dyspnoea [Recovered/Resolved]
  - Dysphagia [Recovered/Resolved]
  - Nausea [Recovered/Resolved]
